FAERS Safety Report 6293106-6 (Version None)
Quarter: 2009Q3

REPORT INFORMATION
  Report Type: 
  Country: None (occurrence: None)
  Receive Date: 20090731
  Receipt Date: 20090727
  Transmission Date: 20100115
  Serious: Yes (Death)
  Sender: FDA-Public Use
  Company Number: PHHY2009IT31102

PATIENT
  Age: 57 Year
  Sex: Female

DRUGS (1)
  1. IMATINIB MESYLATE [Suspect]
     Indication: GASTROINTESTINAL STROMAL TUMOUR
     Dosage: 400 MG/DAY

REACTIONS (4)
  - BLAST CELL COUNT INCREASED [None]
  - CHROMOSOME ANALYSIS ABNORMAL [None]
  - PANCYTOPENIA [None]
  - PERIORBITAL OEDEMA [None]
